FAERS Safety Report 8060744-X (Version None)
Quarter: 2012Q1

REPORT INFORMATION
  Report Type: 
  Country: None (occurrence: None)
  Receive Date: 20120120
  Receipt Date: 20120112
  Transmission Date: 20120608
  Serious: Yes (Hospitalization)
  Sender: FDA-Public Use
  Company Number: NL-ASTRAZENECA-2011SE76383

PATIENT
  Sex: Female

DRUGS (3)
  1. ANTICOAGULANTIA [Concomitant]
  2. FERRO [Concomitant]
  3. ESOMEPRAZOLE MAGNESIUM/NAPROXEN [Suspect]
     Dosage: 500/20 MG
     Route: 048
     Dates: start: 20110926

REACTIONS (2)
  - GASTROINTESTINAL HAEMORRHAGE [None]
  - CEREBROVASCULAR ACCIDENT [None]
